FAERS Safety Report 17409751 (Version 1)
Quarter: 2020Q1

REPORT INFORMATION
  Report Type: Spontaneous
  Country: DE (occurrence: DE)
  Receive Date: 20200212
  Receipt Date: 20200212
  Transmission Date: 20200409
  Serious: Yes (Other)
  Sender: FDA-Public Use
  Company Number: DE-ANIPHARMA-2020-DE-000016

PATIENT
  Sex: Female

DRUGS (11)
  1. VITAMIN D [Concomitant]
     Active Substance: VITAMIN D NOS
     Dosage: UNKNOWN
     Route: 065
  2. VALSARTAN. [Concomitant]
     Active Substance: VALSARTAN
     Dosage: UNKNOWN
     Route: 065
  3. L-THYROXIN [Concomitant]
     Active Substance: LEVOTHYROXINE SODIUM
     Dosage: UNKNOWN
     Route: 065
  4. SELENIUM [Concomitant]
     Active Substance: SELENIUM
     Dosage: UNKNOWN
     Route: 065
  5. ACETYLSALICYLIC ACID [Concomitant]
     Active Substance: ASPIRIN
     Dosage: UNKNOWN
     Route: 065
  6. NEURELAX [Concomitant]
     Dosage: UKNOWN
     Route: 065
  7. DAXAS [Concomitant]
     Active Substance: ROFLUMILAST
     Dosage: 2 TIMES 4 WEEKS DAXAS 250 MG, THEN 500 MG
     Route: 065
     Dates: start: 201908
  8. ALVESCO [Concomitant]
     Active Substance: CICLESONIDE
     Dosage: 160 MICROGRAMS
     Route: 065
  9. SALBUTAMOL [Concomitant]
     Active Substance: ALBUTEROL
     Dosage: UNKNOWN
     Route: 065
  10. ULTIBRO [Concomitant]
     Active Substance: GLYCOPYRRONIUM\INDACATEROL
     Dosage: UNKNOWN
     Route: 065
  11. CANDESARTAN CILEXETIL. [Suspect]
     Active Substance: CANDESARTAN CILEXETIL
     Indication: PRODUCT USED FOR UNKNOWN INDICATION
     Dosage: UNKNOWN
     Route: 048

REACTIONS (15)
  - Vasodilatation [Unknown]
  - Decreased appetite [Unknown]
  - Dizziness [Unknown]
  - Gamma-glutamyltransferase increased [Unknown]
  - Vascular occlusion [Unknown]
  - Weight decreased [Unknown]
  - Pulmonary arterial hypertension [Unknown]
  - Visual impairment [Unknown]
  - Insomnia [Unknown]
  - Anxiety [Unknown]
  - Nausea [Unknown]
  - Headache [Unknown]
  - Arteriosclerosis [Unknown]
  - Palpitations [Unknown]
  - Diarrhoea [Unknown]
